FAERS Safety Report 9260358 (Version 1)
Quarter: 2013Q1

REPORT INFORMATION
  Report Type: Spontaneous
  Country: US (occurrence: None)
  Receive Date: 20121212
  Receipt Date: 20121212
  Transmission Date: 20140127
  Serious: No
  Sender: FDA-Public Use
  Company Number: 1209USA011695

PATIENT
  Sex: Male

DRUGS (3)
  1. VICTRELIS (BOCEPREVIR) CAPSULE [Suspect]
     Indication: HEPATITIS C
     Dates: start: 20120920
  2. PEGASYS [Suspect]
     Indication: HEPATITIS C
     Dates: start: 20120823
  3. RIBAVIRIN [Suspect]
     Indication: HEPATITIS C
     Dates: start: 20120823

REACTIONS (1)
  - Nausea [None]
